FAERS Safety Report 8346052-8 (Version None)
Quarter: 2012Q2

REPORT INFORMATION
  Report Type: 
  Country: None (occurrence: None)
  Receive Date: 20120509
  Receipt Date: 20120504
  Transmission Date: 20120825
  Serious: No
  Sender: FDA-Public Use
  Company Number: US-PFIZER INC-2012110515

PATIENT
  Sex: Male

DRUGS (4)
  1. METFORMIN [Concomitant]
     Indication: DIABETES MELLITUS
     Dosage: UNK
  2. AMARYL [Concomitant]
     Indication: DIABETES MELLITUS
     Dosage: UNK
  3. LIPITOR [Suspect]
     Dosage: 10 MG, 1X/DAY
     Route: 048
     Dates: end: 20090201
  4. LIPITOR [Suspect]
     Indication: BLOOD CHOLESTEROL INCREASED
     Dosage: 10 MG, 1X/DAY
     Route: 048

REACTIONS (3)
  - BLOOD TRIGLYCERIDES INCREASED [None]
  - HIGH DENSITY LIPOPROTEIN DECREASED [None]
  - BLOOD CHOLESTEROL INCREASED [None]
